FAERS Safety Report 26165018 (Version 1)
Quarter: 2025Q4

REPORT INFORMATION
  Report Type: Spontaneous
  Country: US (occurrence: US)
  Receive Date: 20251216
  Receipt Date: 20251216
  Transmission Date: 20260119
  Serious: No
  Sender: MILLICENT HOLDINGS
  Company Number: US-Millicent Holdings Ltd.-MILL20250369

PATIENT
  Age: 63 Year
  Sex: Female

DRUGS (1)
  1. INTRAROSA [Suspect]
     Active Substance: PRASTERONE
     Indication: Vulvovaginal dryness
     Dosage: UNKNOWN
     Route: 067
     Dates: start: 20251201

REACTIONS (3)
  - Diarrhoea [Unknown]
  - Gastrointestinal pain [Unknown]
  - Off label use [Unknown]

NARRATIVE: CASE EVENT DATE: 20251201
